FAERS Safety Report 5008520-6 (Version None)
Quarter: 2006Q2

REPORT INFORMATION
  Report Type: 
  Country: None (occurrence: None)
  Receive Date: 20060522
  Receipt Date: 20060522
  Transmission Date: 20061013
  Serious: Yes (Other)
  Sender: FDA-Public Use
  Company Number: None

PATIENT
  Age: 60 Year
  Sex: Female
  Weight: 68.0396 kg

DRUGS (1)
  1. BACITRACIN [Suspect]
     Indication: SKIN LACERATION
     Dosage: USED ONCE - 1/10 OF TEACUP   ONCE    OTHER
     Route: 050
     Dates: start: 20060510, end: 20060510

REACTIONS (3)
  - APPLICATION SITE REACTION [None]
  - APPLICATION SITE SWELLING [None]
  - DISCOMFORT [None]
